FAERS Safety Report 5246803-5 (Version None)
Quarter: 2007Q1

REPORT INFORMATION
  Report Type: 
  Country: None (occurrence: None)
  Receive Date: 20070226
  Receipt Date: 20070216
  Transmission Date: 20070707
  Serious: Yes (Hospitalization)
  Sender: FDA-Public Use
  Company Number: US-PFIZER INC-2007012950

PATIENT
  Age: 35 Year
  Sex: Male

DRUGS (5)
  1. XANAX [Suspect]
     Indication: ANXIETY
     Dosage: TEXT:UNKNOWN
  2. XANAX [Suspect]
     Indication: DEPRESSION
  3. BLINDED THERAPY [Suspect]
     Indication: HYPERTENSION
     Dosage: TEXT:UNKNOWN
  4. LEXAPRO [Concomitant]
  5. ALAVERT [Concomitant]

REACTIONS (8)
  - ASTHENIA [None]
  - CRYING [None]
  - FALL [None]
  - JUDGEMENT IMPAIRED [None]
  - MENTAL IMPAIRMENT [None]
  - OBSESSIVE THOUGHTS [None]
  - OVERDOSE [None]
  - WEIGHT DECREASED [None]
